FAERS Safety Report 9837218 (Version 2)
Quarter: 2014Q1

REPORT INFORMATION
  Report Type: Spontaneous
  Country: DE (occurrence: DE)
  Receive Date: 20140123
  Receipt Date: 20140123
  Transmission Date: 20141002
  Serious: Yes (Other)
  Sender: FDA-Public Use
  Company Number: PHHY2013DE080417

PATIENT
  Age: 14 Year
  Sex: Male
  Weight: 68 kg

DRUGS (1)
  1. DIOVAN [Suspect]
     Indication: HYPERTENSION
     Dosage: 120 MG, UNK(80 MG + 40 MG)
     Route: 048
     Dates: start: 201109, end: 201303

REACTIONS (1)
  - Growth retardation [Recovering/Resolving]
